FAERS Safety Report 6262178-7 (Version None)
Quarter: 2009Q3

REPORT INFORMATION
  Report Type: 
  Country: None (occurrence: None)
  Receive Date: 20090709
  Receipt Date: 20090703
  Transmission Date: 20100115
  Serious: Yes (Other)
  Sender: FDA-Public Use
  Company Number: ES-MERCK-0805ESP00034

PATIENT
  Age: 43 Year
  Sex: Female

DRUGS (4)
  1. COSOPT [Suspect]
     Indication: INTRAOCULAR PRESSURE INCREASED
     Route: 047
     Dates: start: 20030604, end: 20080910
  2. LEVOTHYROXINE SODIUM [Concomitant]
     Route: 048
  3. IRON SUCCINYL-PROTEIN COMPLEX [Concomitant]
     Route: 048
     Dates: start: 20080429
  4. FOLINIC ACID [Concomitant]
     Route: 048
     Dates: start: 20080106

REACTIONS (7)
  - ALANINE AMINOTRANSFERASE INCREASED [None]
  - ASPARTATE AMINOTRANSFERASE INCREASED [None]
  - AUTOIMMUNE HEPATITIS [None]
  - BLOOD CHOLESTEROL INCREASED [None]
  - CAESAREAN SECTION [None]
  - DRUG EXPOSURE DURING PREGNANCY [None]
  - FOETAL-MATERNAL HAEMORRHAGE [None]
